FAERS Safety Report 8199983-6 (Version None)
Quarter: 2012Q1

REPORT INFORMATION
  Report Type: 
  Country: None (occurrence: None)
  Receive Date: 20120312
  Receipt Date: 20120306
  Transmission Date: 20120608
  Serious: No
  Sender: FDA-Public Use
  Company Number: US-PFIZER INC-2012018476

PATIENT
  Sex: Female
  Weight: 62.585 kg

DRUGS (2)
  1. CLONIDINE [Concomitant]
     Indication: ANXIETY
     Dosage: UNK
  2. EFFEXOR XR [Suspect]
     Indication: DEPRESSION
     Dosage: 150 MG, 1X/DAY
     Route: 048
     Dates: start: 20120112, end: 20120201

REACTIONS (3)
  - NAUSEA [None]
  - DEPRESSION [None]
  - DRUG INEFFECTIVE [None]
